FAERS Safety Report 7917087-1 (Version None)
Quarter: 2011Q4

REPORT INFORMATION
  Report Type: 
  Country: None (occurrence: None)
  Receive Date: 20111114
  Receipt Date: 20111103
  Transmission Date: 20120403
  Serious: Yes (Hospitalization, Other)
  Sender: FDA-Public Use
  Company Number: CL-356-2011

PATIENT
  Age: 48 Year
  Sex: Female

DRUGS (4)
  1. DIGOXIN [Concomitant]
  2. CARVEDILOL [Concomitant]
  3. ENALAPRIL MALEATE [Concomitant]
  4. AMIODARONE HCL [Suspect]
     Indication: VENTRICULAR TACHYCARDIA
     Dosage: 125 MG BOLUS, 40MG/H, IV
     Route: 040

REACTIONS (3)
  - PALPITATIONS [None]
  - VENTRICULAR EXTRASYSTOLES [None]
  - VENTRICULAR TACHYCARDIA [None]
